FAERS Safety Report 5049429-1 (Version None)
Quarter: 2006Q3

REPORT INFORMATION
  Report Type: 
  Country: None (occurrence: None)
  Receive Date: 20060712
  Receipt Date: 20050504
  Transmission Date: 20061208
  Serious: Yes (Hospitalization)
  Sender: FDA-Public Use
  Company Number: DK-ROCHE-403924

PATIENT
  Age: 70 Year
  Sex: Female

DRUGS (3)
  1. CAPECITABINE [Suspect]
     Indication: BREAST CANCER
     Dosage: CYCLE IMMEDIATELY PRIOR TO EVENTS STARTED ON 25 FEBRUARY 2005.
     Route: 048
  2. BONDRONAT [Concomitant]
     Dates: start: 20040902
  3. PANTOPRAZOLE SODIUM [Concomitant]
     Dates: start: 20040118

REACTIONS (4)
  - DIARRHOEA [None]
  - PULMONARY OEDEMA [None]
  - SEPSIS [None]
  - VOMITING [None]
